FAERS Safety Report 4470156-3 (Version None)
Quarter: 2004Q3

REPORT INFORMATION
  Report Type: 
  Country: None (occurrence: None)
  Receive Date: 20040910
  Receipt Date: 20040725
  Transmission Date: 20050211
  Serious: No
  Sender: FDA-Public Use
  Company Number: 2004225790US

PATIENT
  Age: 34 Year
  Sex: Male

DRUGS (3)
  1. BEXTRA [Suspect]
     Indication: BACK PAIN
     Dosage: 10 MG, BID
     Dates: start: 20040722
  2. SYNTHROID [Concomitant]
  3. ZANAFLEX [Concomitant]

REACTIONS (2)
  - COELIAC DISEASE [None]
  - VOMITING [None]
